FAERS Safety Report 19098778 (Version 2)
Quarter: 2021Q2

REPORT INFORMATION
  Report Type: Report from Study
  Country: US (occurrence: US)
  Receive Date: 20210406
  Receipt Date: 20210427
  Transmission Date: 20210717
  Serious: Yes (Hospitalization)
  Sender: FDA-Public Use
  Company Number: US-EXELIXIS-XL18421038879

PATIENT

DRUGS (4)
  1. XL184 [Suspect]
     Active Substance: CABOZANTINIB
     Indication: RECTAL CANCER
     Dosage: 40 MG, QD
     Route: 048
     Dates: start: 20201016, end: 20210323
  2. DURVALUMAB. [Suspect]
     Active Substance: DURVALUMAB
     Indication: RECTAL CANCER
     Dosage: 1500 MG, Q4WEEKS
     Route: 042
     Dates: start: 20201016, end: 20210304
  3. NORVASC [Concomitant]
     Active Substance: AMLODIPINE BESYLATE
     Dosage: UNK
     Dates: start: 20210218, end: 20210331
  4. TEMOVATE [Concomitant]
     Active Substance: CLOBETASOL PROPIONATE
     Dosage: UNK
     Dates: start: 20210121

REACTIONS (1)
  - Blood bilirubin increased [Unknown]

NARRATIVE: CASE EVENT DATE: 20210323
